FAERS Safety Report 10444053 (Version 1)
Quarter: 2014Q3

REPORT INFORMATION
  Report Type: Spontaneous
  Country: IN (occurrence: IN)
  Receive Date: 20140910
  Receipt Date: 20140910
  Transmission Date: 20150326
  Serious: Yes (Disabling, Other)
  Sender: FDA-Public Use
  Company Number: IN-PAR PHARMACEUTICAL, INC-2014SCPR009379

PATIENT

DRUGS (3)
  1. OLANZAPINE. [Suspect]
     Active Substance: OLANZAPINE
     Indication: MANIA
     Dosage: 20 MG, / DAY
     Route: 048
  2. SODIUM VALPROATE [Concomitant]
     Active Substance: VALPROATE SODIUM
     Indication: MANIA
     Dosage: 1500 MG, / DAY
     Route: 048
  3. OLANZAPINE. [Suspect]
     Active Substance: OLANZAPINE
     Dosage: 15 MG, / DAY
     Route: 048

REACTIONS (2)
  - Deafness neurosensory [Recovering/Resolving]
  - Extrapyramidal disorder [None]
